FAERS Safety Report 8987623 (Version 1)
Quarter: 2012Q4

REPORT INFORMATION
  Report Type: 
  Country: US (occurrence: US)
  Receive Date: 20121227
  Receipt Date: 20121227
  Transmission Date: 20130627
  Serious: Yes (Hospitalization, Disabling)
  Sender: FDA-Public Use
  Company Number: US-MPIJNJ-2012-09093

PATIENT
  Age: 60 None
  Sex: Male

DRUGS (1)
  1. VELCADE [Suspect]
     Indication: MULTIPLE MYELOMA
     Dosage: 3 mg, Cyclic
     Route: 058
     Dates: start: 201206

REACTIONS (3)
  - Wheelchair user [Unknown]
  - Intervertebral disc compression [Unknown]
  - Back pain [Unknown]
